FAERS Safety Report 10004794 (Version 1)
Quarter: 2014Q1

REPORT INFORMATION
  Report Type: Spontaneous
  Country: IT (occurrence: IT)
  Receive Date: 20140312
  Receipt Date: 20140312
  Transmission Date: 20141002
  Serious: Yes (Hospitalization)
  Sender: FDA-Public Use
  Company Number: IT-GLAXOSMITHKLINE-B0975636A

PATIENT
  Age: 66 Year
  Sex: Female

DRUGS (3)
  1. RANIDIL [Suspect]
     Indication: BILIARY COLIC
     Dosage: 50MG PER DAY
     Route: 042
     Dates: start: 20131124
  2. TORADOL [Suspect]
     Indication: BILIARY COLIC
     Dosage: 30MG PER DAY
     Route: 042
     Dates: start: 20131124
  3. SPASMEX [Suspect]
     Indication: BILIARY COLIC
     Dosage: 40MG PER DAY
     Route: 042
     Dates: start: 20131124

REACTIONS (2)
  - Lip oedema [Recovered/Resolved with Sequelae]
  - Throat tightness [Recovered/Resolved with Sequelae]
